FAERS Safety Report 24646482 (Version 1)
Quarter: 2024Q4

REPORT INFORMATION
  Report Type: Spontaneous
  Country: PL (occurrence: PL)
  Receive Date: 20241121
  Receipt Date: 20241121
  Transmission Date: 20250115
  Serious: Yes (Other)
  Sender: GILEAD
  Company Number: PL-GILEAD-2024-0694478

PATIENT
  Age: 68 Year
  Sex: Female

DRUGS (2)
  1. TRODELVY [Suspect]
     Active Substance: SACITUZUMAB GOVITECAN-HZIY
     Indication: Breast cancer
     Dosage: FIRST COURSE OF TRODELVY
     Route: 065
     Dates: start: 20240110
  2. TRODELVY [Suspect]
     Active Substance: SACITUZUMAB GOVITECAN-HZIY
     Dosage: FIFTH COURSE
     Route: 065
     Dates: start: 20240424

REACTIONS (1)
  - Disease progression [Recovering/Resolving]

NARRATIVE: CASE EVENT DATE: 20240430
